FAERS Safety Report 14175798 (Version 1)
Quarter: 2017Q4

REPORT INFORMATION
  Report Type: Spontaneous
  Country: US (occurrence: US)
  Receive Date: 20171109
  Receipt Date: 20171109
  Transmission Date: 20180321
  Serious: No
  Sender: FDA-Public Use
  Company Number: US-BAYER-2017-215943

PATIENT
  Age: 74 Year
  Sex: Female
  Weight: 96 kg

DRUGS (2)
  1. MIRALAX [Suspect]
     Active Substance: POLYETHYLENE GLYCOL 3350
     Dosage: UNK
     Route: 048
     Dates: start: 2016
  2. EASPRIN [Concomitant]
     Dosage: UNK

REACTIONS (2)
  - Inappropriate prescribing [Unknown]
  - Product use issue [Unknown]

NARRATIVE: CASE EVENT DATE: 2016
